FAERS Safety Report 21381291 (Version 1)
Quarter: 2022Q3

REPORT INFORMATION
  Report Type: Spontaneous
  Country: AU (occurrence: AU)
  Receive Date: 20220927
  Receipt Date: 20220927
  Transmission Date: 20221027
  Serious: Yes (Death, Other)
  Sender: FDA-Public Use
  Company Number: AU-GLAXOSMITHKLINE-AU2022APC135930

PATIENT
  Age: 75 Year
  Sex: Female

DRUGS (7)
  1. AMBRISENTAN [Suspect]
     Active Substance: AMBRISENTAN
     Indication: Product used for unknown indication
     Dosage: 10 MG, QD
     Route: 065
  2. TADALAFIL [Suspect]
     Active Substance: TADALAFIL
     Indication: Product used for unknown indication
     Dosage: 20 MG, QD
     Route: 065
  3. ROSUVASTATIN CALCIUM [Concomitant]
     Active Substance: ROSUVASTATIN CALCIUM
     Indication: Product used for unknown indication
     Dosage: 10 MG, QD
  4. CARVEDILOL HYDROCHLORIDE [Concomitant]
     Active Substance: CARVEDILOL HYDROCHLORIDE
     Indication: Product used for unknown indication
     Dosage: 12.5 MG, QD
  5. ASCORBIC ACID\FERROUS SULFATE [Concomitant]
     Active Substance: ASCORBIC ACID\FERROUS SULFATE
     Indication: Product used for unknown indication
     Dosage: 1000 MG, QD
  6. SPIRACTIN [Concomitant]
     Indication: Product used for unknown indication
     Dosage: 100 MG, QD
  7. ZABEP [Concomitant]
     Indication: Product used for unknown indication
     Dosage: 20 MG, QD

REACTIONS (1)
  - Death [Fatal]
